FAERS Safety Report 8801861 (Version 2)
Quarter: 2012Q4

REPORT INFORMATION
  Report Type: 
  Country: US (occurrence: US)
  Receive Date: 20120921
  Receipt Date: 20121108
  Transmission Date: 20130627
  Serious: No
  Sender: FDA-Public Use
  Company Number: US-009507513-1209USA007240

PATIENT
  Age: 27 Year
  Sex: Female
  Weight: 68.27 kg

DRUGS (3)
  1. IMPLANON [Suspect]
     Indication: CONTRACEPTION
     Dosage: 1 DF, to three years UNK
     Route: 059
     Dates: start: 20090303
  2. IBUPROFEN [Concomitant]
     Dosage: UNK, prn
  3. EXCEDRIN (ACETAMINOPHEN (+) ASPIRIN (+) CAFFEINE) [Concomitant]
     Dosage: UNK, prn

REACTIONS (2)
  - Hypoaesthesia [Unknown]
  - Incorrect drug administration duration [Not Recovered/Not Resolved]
